FAERS Safety Report 21580242 (Version 2)
Quarter: 2022Q4

REPORT INFORMATION
  Report Type: Report from Study
  Country: US (occurrence: US)
  Receive Date: 20221110
  Receipt Date: 20221125
  Transmission Date: 20230113
  Serious: Yes (Hospitalization)
  Sender: FDA-Public Use
  Company Number: US-JNJFOC-20221107665

PATIENT
  Sex: Female

DRUGS (1)
  1. REMICADE [Suspect]
     Active Substance: INFLIXIMAB
     Indication: Crohn^s disease
     Dosage: LAST DOSE OF REMICADE WAS ON 9-SEP-2022
     Route: 041
     Dates: start: 2014

REACTIONS (2)
  - Lupus-like syndrome [Unknown]
  - Therapy non-responder [Unknown]
